FAERS Safety Report 9135855 (Version 1)
Quarter: 2013Q1

REPORT INFORMATION
  Report Type: Spontaneous
  Country: US (occurrence: US)
  Receive Date: 20130219
  Receipt Date: 20130219
  Transmission Date: 20140127
  Serious: No
  Sender: FDA-Public Use
  Company Number: US-BRISTOL-MYERS SQUIBB COMPANY-17116278

PATIENT
  Age: 53 Year
  Sex: Female
  Weight: 90.7 kg

DRUGS (1)
  1. ABATACEPT SUBQ INJECTION 125MG/ML [Suspect]
     Indication: RHEUMATOID ARTHRITIS
     Dosage: LAST INJ:5NOV12
     Route: 058
     Dates: start: 2012

REACTIONS (3)
  - Myalgia [Unknown]
  - Muscle spasms [Unknown]
  - Incorrect storage of drug [Unknown]
